FAERS Safety Report 8775361 (Version 1)
Quarter: 2012Q4

REPORT INFORMATION
  Report Type: 
  Country: US (occurrence: US)
  Receive Date: 20120910
  Receipt Date: 20120910
  Transmission Date: 20130627
  Serious: Yes (Other)
  Sender: FDA-Public Use
  Company Number: US-ASTRAZENECA-2012SE65661

PATIENT
  Age: 25 Year
  Sex: Male

DRUGS (2)
  1. OMEPRAZOLE [Suspect]
     Indication: STRESS ULCER
     Route: 048
  2. METHOTREXATE [Interacting]
     Indication: BONE SARCOMA

REACTIONS (6)
  - Drug interaction [Recovered/Resolved]
  - Convulsion [Recovered/Resolved]
  - Renal failure acute [Recovered/Resolved]
  - Toxicity to various agents [Recovered/Resolved]
  - Thrombocytopenia [Recovered/Resolved]
  - Mucosal inflammation [Recovered/Resolved]
